FAERS Safety Report 23808881 (Version 4)
Quarter: 2024Q4

REPORT INFORMATION
  Report Type: Report from Study
  Country: US (occurrence: US)
  Receive Date: 20240502
  Receipt Date: 20241024
  Transmission Date: 20250115
  Serious: Yes (Other)
  Sender: ABBVIE
  Company Number: US-ABBVIE-5739838

PATIENT
  Sex: Male

DRUGS (3)
  1. RINVOQ [Suspect]
     Active Substance: UPADACITINIB
     Indication: Rheumatoid arthritis
     Route: 048
     Dates: start: 20231225
  2. RINVOQ [Suspect]
     Active Substance: UPADACITINIB
     Indication: Rheumatoid arthritis
     Route: 048
  3. RINVOQ [Suspect]
     Active Substance: UPADACITINIB
     Indication: Rheumatoid arthritis
     Route: 048

REACTIONS (20)
  - Stress fracture [Unknown]
  - Tooth fracture [Recovering/Resolving]
  - Fall [Recovering/Resolving]
  - Sensory disturbance [Recovering/Resolving]
  - Myalgia [Unknown]
  - Arthralgia [Unknown]
  - Sciatica [Unknown]
  - Animal scratch [Unknown]
  - White blood cell count increased [Recovering/Resolving]
  - Feeling hot [Unknown]
  - Electric shock sensation [Unknown]
  - Blood parathyroid hormone increased [Not Recovered/Not Resolved]
  - Blood calcium increased [Not Recovered/Not Resolved]
  - Wound complication [Unknown]
  - Loss of personal independence in daily activities [Unknown]
  - Osteoarthritis [Unknown]
  - Hypotension [Recovered/Resolved]
  - Dry eye [Not Recovered/Not Resolved]
  - Pain [Unknown]
  - Calcinosis [Not Recovered/Not Resolved]

NARRATIVE: CASE EVENT DATE: 20240101
